FAERS Safety Report 8066606-6 (Version None)
Quarter: 2012Q1

REPORT INFORMATION
  Report Type: 
  Country: None (occurrence: None)
  Receive Date: 20120124
  Receipt Date: 20120119
  Transmission Date: 20120608
  Serious: Yes (Life-Threatening, Hospitalization, Other)
  Sender: FDA-Public Use
  Company Number: PHHY2012FR001960

PATIENT
  Sex: Female

DRUGS (6)
  1. LEXOMIL [Concomitant]
     Dosage: 3 MG, DAILY
  2. EFFEXOR [Suspect]
     Dosage: 75 MG, QD
  3. KEPPRA [Suspect]
     Dosage: 500 MG, BID
  4. TEGRETOL [Suspect]
     Dosage: 400 MG, 1.5 DF BID
  5. URBANYL [Suspect]
     Dosage: 5 MG, BID
  6. ZYPREXA [Suspect]
     Dosage: 5 MG, QD

REACTIONS (14)
  - HYPONATRAEMIA [None]
  - SOMNOLENCE [None]
  - ANTICHOLINERGIC SYNDROME [None]
  - TONGUE INJURY [None]
  - INAPPROPRIATE ANTIDIURETIC HORMONE SECRETION [None]
  - COMA SCALE ABNORMAL [None]
  - HEADACHE [None]
  - PNEUMONIA ASPIRATION [None]
  - PSYCHOMOTOR SKILLS IMPAIRED [None]
  - CONFUSIONAL STATE [None]
  - COMA [None]
  - OVERDOSE [None]
  - CEREBELLAR SYNDROME [None]
  - NYSTAGMUS [None]
